FAERS Safety Report 4377895-3 (Version None)
Quarter: 2004Q2

REPORT INFORMATION
  Report Type: 
  Country: None (occurrence: None)
  Receive Date: 20040601
  Receipt Date: 20040206
  Transmission Date: 20050107
  Serious: No
  Sender: FDA-Public Use
  Company Number: WAES 0402USA00655

PATIENT
  Age: 74 Year
  Sex: Female

DRUGS (3)
  1. ZETIA [Suspect]
     Indication: DYSLIPIDAEMIA
     Dosage: DAILY, PO
     Route: 048
  2. ZETIA [Suspect]
     Indication: DYSLIPIDAEMIA
     Dosage: 10 MG, DAILY, PO
     Route: 048
  3. SYNTHROID [THERAPY UNSPECIFIED] [Concomitant]

REACTIONS (3)
  - ERUCTATION [None]
  - HEADACHE [None]
  - MEDICATION ERROR [None]
